FAERS Safety Report 15889098 (Version 2)
Quarter: 2019Q1

REPORT INFORMATION
  Report Type: Report from Study
  Country: CO (occurrence: CO)
  Receive Date: 20190130
  Receipt Date: 20190212
  Transmission Date: 20190417
  Serious: Yes (Hospitalization)
  Sender: FDA-Public Use
  Company Number: CO-ACTELION-A-CH2019-185542

PATIENT
  Age: 67 Year
  Sex: Female
  Weight: 51 kg

DRUGS (1)
  1. OPSUMIT [Suspect]
     Active Substance: MACITENTAN
     Indication: PULMONARY ARTERIAL HYPERTENSION
     Dosage: 10 MG, QD
     Route: 048
     Dates: start: 20190116

REACTIONS (4)
  - Poor quality sleep [Recovering/Resolving]
  - Feeling hot [Recovering/Resolving]
  - Lung disorder [Not Recovered/Not Resolved]
  - Choking [Recovering/Resolving]

NARRATIVE: CASE EVENT DATE: 20190121
